FAERS Safety Report 9577592 (Version 1)
Quarter: 2013Q4

REPORT INFORMATION
  Report Type: Spontaneous
  Country: US (occurrence: US)
  Receive Date: 20131001
  Receipt Date: 20131001
  Transmission Date: 20140711
  Serious: No
  Sender: FDA-Public Use
  Company Number: US-AMGEN-USASP2013008569

PATIENT
  Age: 49 Year
  Sex: Female
  Weight: 122.45 kg

DRUGS (6)
  1. ENBREL [Suspect]
     Indication: PSORIASIS
     Dosage: 50 MG, QWK
     Route: 030
     Dates: start: 20120514
  2. NORVASC [Concomitant]
     Dosage: 10 MG, UNK
  3. LIPITOR [Concomitant]
     Dosage: 10 MG, UNK
  4. ALEGRA [Concomitant]
     Dosage: 180 MG, UNK
  5. LANTUS [Concomitant]
  6. NOVOLOG [Concomitant]
     Dosage: 100/ML

REACTIONS (1)
  - Gastroenteritis viral [Recovered/Resolved]
